FAERS Safety Report 9553468 (Version 1)
Quarter: 2013Q3

REPORT INFORMATION
  Report Type: Spontaneous
  Country: US (occurrence: US)
  Receive Date: 20130925
  Receipt Date: 20130925
  Transmission Date: 20140515
  Serious: No
  Sender: FDA-Public Use
  Company Number: US-TEVA-434111USA

PATIENT
  Age: 22 Year
  Sex: Female
  Weight: 61.29 kg

DRUGS (3)
  1. PARAGARD 380A [Suspect]
     Indication: CONTRACEPTION
     Route: 015
     Dates: start: 20130620
  2. HYDROCODONE [Suspect]
     Indication: WISDOM TEETH REMOVAL
     Dates: start: 20130621, end: 20130621
  3. MULTIVITAMIN [Concomitant]
     Indication: VITAMIN SUPPLEMENTATION

REACTIONS (4)
  - Menorrhagia [Not Recovered/Not Resolved]
  - Pain [Recovered/Resolved]
  - Muscle spasms [Recovered/Resolved]
  - Medication error [Recovered/Resolved]
